FAERS Safety Report 20946328 (Version 4)
Quarter: 2022Q3

REPORT INFORMATION
  Report Type: Spontaneous
  Country: US (occurrence: US)
  Receive Date: 20220610
  Receipt Date: 20220719
  Transmission Date: 20221027
  Serious: No
  Sender: FDA-Public Use
  Company Number: US-PFIZER INC-202200820953

PATIENT
  Age: 61 Year
  Sex: Female
  Weight: 72.562 kg

DRUGS (2)
  1. ESTRING [Suspect]
     Active Substance: ESTRADIOL
     Indication: Atrophic vulvovaginitis
     Dosage: UNK UNK, EVERY 3 MONTHS (1 RING OF 3 MONTHS)
     Route: 067
     Dates: start: 20220507, end: 20220616
  2. ESTRING [Suspect]
     Active Substance: ESTRADIOL
     Indication: Blood oestrogen

REACTIONS (3)
  - Dysuria [Recovered/Resolved]
  - Therapeutic product effect incomplete [Recovered/Resolved]
  - Product quality issue [Unknown]

NARRATIVE: CASE EVENT DATE: 20220612
